FAERS Safety Report 6306902-3 (Version None)
Quarter: 2009Q3

REPORT INFORMATION
  Report Type: 
  Country: None (occurrence: None)
  Receive Date: 20090811
  Receipt Date: 20090811
  Transmission Date: 20100115
  Serious: No
  Sender: FDA-Public Use
  Company Number: None

PATIENT
  Age: 53 Year
  Sex: Female
  Weight: 67.1324 kg

DRUGS (1)
  1. CARDURA [Suspect]
     Indication: HYPERTENSION
     Dosage: 2MG ONE DAILY PO
     Route: 048
     Dates: start: 20090801, end: 20090803

REACTIONS (3)
  - DRUG EFFECT INCREASED [None]
  - HEART RATE INCREASED [None]
  - HOT FLUSH [None]
